FAERS Safety Report 4972314-8 (Version None)
Quarter: 2006Q2

REPORT INFORMATION
  Report Type: 
  Country: None (occurrence: None)
  Receive Date: 20060413
  Receipt Date: 20050426
  Transmission Date: 20061013
  Serious: Yes (Hospitalization)
  Sender: FDA-Public Use
  Company Number: BE-BOEHRINGER INGELHEIM PHARMACEUTICALS, INC.-2005-BL-00172BL

PATIENT
  Sex: Male
  Weight: 96.8 kg

DRUGS (6)
  1. TPV/RTV [Suspect]
     Indication: HIV INFECTION
     Dosage: STRENGTH: 250MG/100MG; DAILY DOSE: 1000MG/400MG
     Route: 048
     Dates: start: 20031204
  2. SAQUINAVIR [Concomitant]
     Indication: HIV INFECTION
     Route: 048
     Dates: start: 20030619
  3. ZIAGEN [Concomitant]
     Indication: HIV INFECTION
     Route: 048
     Dates: start: 20030619
  4. VIREAD [Concomitant]
     Indication: HIV INFECTION
     Route: 048
     Dates: start: 20030619
  5. VIDEX [Concomitant]
     Indication: HIV INFECTION
     Route: 048
     Dates: start: 20030619
  6. EFAVIRENZ [Concomitant]
     Indication: HIV INFECTION
     Route: 048
     Dates: start: 20030619

REACTIONS (4)
  - CARPAL TUNNEL SYNDROME [None]
  - NECK PAIN [None]
  - PARAESTHESIA [None]
  - SPINAL OSTEOARTHRITIS [None]
